FAERS Safety Report 9970849 (Version 1)
Quarter: 2014Q1

REPORT INFORMATION
  Report Type: Spontaneous
  Country: US (occurrence: None)
  Receive Date: 20140305
  Receipt Date: 20140305
  Transmission Date: 20141002
  Serious: Yes (Other)
  Sender: FDA-Public Use
  Company Number: None

PATIENT
  Age: 48 Year
  Sex: Female
  Weight: 86.18 kg

DRUGS (1)
  1. DICLOFENAC SODIUM [Suspect]
     Indication: SPONDYLITIS
     Dosage: 1 TABLET
     Route: 048
     Dates: start: 20140201, end: 20140222

REACTIONS (1)
  - Tinnitus [None]
